FAERS Safety Report 23286473 (Version 1)
Quarter: 2023Q4

REPORT INFORMATION
  Report Type: Spontaneous
  Country: US (occurrence: None)
  Receive Date: 20231208
  Receipt Date: 20231208
  Transmission Date: 20240109
  Serious: Yes (Disabling, Other)
  Sender: FDA-Public Use
  Company Number: None

PATIENT
  Age: 56 Year
  Sex: Male
  Weight: 81 kg

DRUGS (7)
  1. DYSPORT [Suspect]
     Active Substance: ABOBOTULINUMTOXINA
     Dates: start: 20231116
  2. BIKTARVY [Concomitant]
     Active Substance: BICTEGRAVIR SODIUM\EMTRICITABINE\TENOFOVIR ALAFENAMIDE FUMARATE
  3. BUPROPION [Concomitant]
     Active Substance: BUPROPION
  4. AMBIEN [Concomitant]
     Active Substance: ZOLPIDEM TARTRATE
  5. Mulit [Concomitant]
  6. D [Concomitant]
  7. Glucosomine [Concomitant]

REACTIONS (1)
  - Diplopia [None]

NARRATIVE: CASE EVENT DATE: 20231116
